FAERS Safety Report 11484114 (Version 1)
Quarter: 2015Q3

REPORT INFORMATION
  Report Type: Spontaneous
  Country: US (occurrence: US)
  Receive Date: 20150909
  Receipt Date: 20150909
  Transmission Date: 20151125
  Serious: No
  Sender: FDA-Public Use
  Company Number: US-JAZZ-2015-US-001130

PATIENT
  Age: 32 Year
  Sex: Female

DRUGS (3)
  1. XYREM [Suspect]
     Active Substance: SODIUM OXYBATE
     Dosage: 3 G, BID
     Route: 048
     Dates: start: 201401, end: 201403
  2. XYREM [Suspect]
     Active Substance: SODIUM OXYBATE
     Indication: HYPERSOMNIA
     Dosage: 2 G, BID
     Route: 048
     Dates: start: 201309, end: 201310
  3. XYREM [Suspect]
     Active Substance: SODIUM OXYBATE
     Dosage: 3.5 G, BID
     Route: 048
     Dates: start: 201404, end: 201501

REACTIONS (2)
  - Insomnia [Unknown]
  - Product use issue [Unknown]

NARRATIVE: CASE EVENT DATE: 201501
